FAERS Safety Report 8111741-7 (Version None)
Quarter: 2012Q1

REPORT INFORMATION
  Report Type: 
  Country: None (occurrence: None)
  Receive Date: 20120203
  Receipt Date: 20120131
  Transmission Date: 20120608
  Serious: Yes (Other)
  Sender: FDA-Public Use
  Company Number: US-BAYER-2011-119792

PATIENT
  Sex: Female
  Weight: 60.317 kg

DRUGS (1)
  1. MIRENA [Suspect]
     Indication: CONTRACEPTION
     Dosage: 20 ?G/D, CONT
     Route: 015
     Dates: start: 20111213

REACTIONS (5)
  - PAIN [None]
  - ABASIA [None]
  - ABDOMINAL PAIN [None]
  - PYREXIA [None]
  - TREMOR [None]
